FAERS Safety Report 21481663 (Version 8)
Quarter: 2025Q2

REPORT INFORMATION
  Report Type: Report from Study
  Country: US (occurrence: US)
  Receive Date: 20221020
  Receipt Date: 20250608
  Transmission Date: 20250717
  Serious: Yes (Hospitalization, Other)
  Sender: TAKEDA
  Company Number: US-TAKEDA-2022TUS002633

PATIENT
  Age: 80 Year
  Sex: Female

DRUGS (2)
  1. HUMAN IMMUNOGLOBULIN G [Suspect]
     Active Substance: HUMAN IMMUNOGLOBULIN G
     Indication: Primary immunodeficiency syndrome
     Dosage: UNK UNK, Q2WEEKS
  2. HUMAN IMMUNOGLOBULIN G [Suspect]
     Active Substance: HUMAN IMMUNOGLOBULIN G
     Indication: Immunodeficiency common variable

REACTIONS (12)
  - COVID-19 [Not Recovered/Not Resolved]
  - Device related infection [Recovered/Resolved]
  - Psoriatic arthropathy [Unknown]
  - Sinusitis [Recovered/Resolved]
  - Depressed mood [Unknown]
  - Bladder discomfort [Unknown]
  - Arthritis [Unknown]
  - Inappropriate schedule of product administration [Unknown]
  - Sinusitis bacterial [Unknown]
  - Anaemia [Unknown]
  - Fatigue [Unknown]
  - Infusion site pain [Unknown]

NARRATIVE: CASE EVENT DATE: 20241122
